FAERS Safety Report 8973804 (Version 1)
Quarter: 2012Q4

REPORT INFORMATION
  Report Type: 
  Country: DE (occurrence: GB)
  Receive Date: 20121219
  Receipt Date: 20121219
  Transmission Date: 20130627
  Serious: Yes (Other)
  Sender: FDA-Public Use
  Company Number: GB-BRISTOL-MYERS SQUIBB COMPANY-17200452

PATIENT
  Age: 64 Year
  Sex: Female
  Weight: 88.9 kg

DRUGS (2)
  1. ABILIFY [Suspect]
     Indication: DEPRESSION
     Route: 048
  2. THYROXINE [Concomitant]

REACTIONS (5)
  - Discomfort [Unknown]
  - Jaw disorder [Unknown]
  - Skin tightness [Recovered/Resolved]
  - Tooth crowding [Unknown]
  - Tremor [Recovered/Resolved]
